FAERS Safety Report 17169819 (Version 3)
Quarter: 2020Q3

REPORT INFORMATION
  Report Type: Spontaneous
  Country: US (occurrence: US)
  Receive Date: 20191218
  Receipt Date: 20200923
  Transmission Date: 20201102
  Serious: No
  Sender: FDA-Public Use
  Company Number: US-PFIZER INC-2019530543

PATIENT
  Age: 64 Year
  Sex: Female
  Weight: 59.42 kg

DRUGS (5)
  1. SKELAXIN [Suspect]
     Active Substance: METAXALONE
     Indication: ARTHRALGIA
     Dosage: 800 MG, AS NEEDED (SOMETIMES I JUST TAKE ONE A DAY. ABOUT 6 MONTHS AGO I TOOK IT 3 TIMES A DAY)
  2. SKELAXIN [Suspect]
     Active Substance: METAXALONE
     Indication: SCIATICA
  3. XANAX [Concomitant]
     Active Substance: ALPRAZOLAM
     Indication: INSOMNIA
     Dosage: UNK, DAILY (AT NIGHT)
  4. SKELAXIN [Suspect]
     Active Substance: METAXALONE
     Indication: BACK PAIN
     Dosage: 800 MG, 3?4 TIMES A DAY AS NEEDED
     Route: 048
     Dates: start: 2005
  5. SKELAXIN [Suspect]
     Active Substance: METAXALONE
     Indication: PAIN

REACTIONS (2)
  - Uterine prolapse [Not Recovered/Not Resolved]
  - Body height decreased [Unknown]

NARRATIVE: CASE EVENT DATE: 2012
